FAERS Safety Report 5887361-1 (Version None)
Quarter: 2008Q3

REPORT INFORMATION
  Report Type: 
  Country: None (occurrence: None)
  Receive Date: 20080915
  Receipt Date: 20080826
  Transmission Date: 20090109
  Serious: Yes (Other)
  Sender: FDA-Public Use
  Company Number: CIP08001658

PATIENT
  Age: 77 Year
  Sex: Female

DRUGS (6)
  1. ACTONEL [Suspect]
     Dosage: 35 MG ONCE WEEKLY, ORAL
     Route: 048
  2. ATENOLOL [Concomitant]
  3. OXYBUTYNINE (OXYBUTYNIN HYDROCHLORIDE) [Concomitant]
  4. PLAVIX [Concomitant]
  5. PRAVACHOL [Concomitant]
  6. HYDROCHLOROTHIAZIDE [Concomitant]

REACTIONS (6)
  - BONE DISORDER [None]
  - CHEST PAIN [None]
  - FALL [None]
  - OESOPHAGITIS [None]
  - PAIN IN JAW [None]
  - ROTATOR CUFF REPAIR [None]
